FAERS Safety Report 25305376 (Version 1)
Quarter: 2025Q2

REPORT INFORMATION
  Report Type: Other
  Country: TR (occurrence: TR)
  Receive Date: 20250513
  Receipt Date: 20250513
  Transmission Date: 20250716
  Serious: Yes (Other)
  Sender: B BRAUN
  Company Number: TR-B.Braun Medical Inc.-2176648

PATIENT
  Age: 34 Year
  Sex: Male
  Weight: 97 kg

DRUGS (3)
  1. BUPIVACAINE HYDROCHLORIDE [Suspect]
     Active Substance: BUPIVACAINE HYDROCHLORIDE
     Indication: Arthroscopy
  2. MORPHINE [Suspect]
     Active Substance: MORPHINE
  3. LEVOTHYROXINE [Concomitant]
     Active Substance: LEVOTHYROXINE

REACTIONS (1)
  - Myoclonus [Recovered/Resolved]
